FAERS Safety Report 11272829 (Version 1)
Quarter: 2015Q3

REPORT INFORMATION
  Report Type: Spontaneous
  Country: US (occurrence: None)
  Receive Date: 20150714
  Receipt Date: 20150714
  Transmission Date: 20151125
  Serious: Yes (Other)
  Sender: FDA-Public Use
  Company Number: None

PATIENT
  Age: 32 Year
  Sex: Female
  Weight: 63.5 kg

DRUGS (3)
  1. LEXAPRO [Concomitant]
     Active Substance: ESCITALOPRAM OXALATE
  2. DAILY MULTI VITAMIN [Concomitant]
  3. NUVARING [Suspect]
     Active Substance: ETHINYL ESTRADIOL\ETONOGESTREL
     Indication: CONTRACEPTION
     Dosage: 1 RING
     Route: 067
     Dates: start: 20150602, end: 20150713

REACTIONS (5)
  - Female orgasmic disorder [None]
  - Vulvovaginal swelling [None]
  - Vulvovaginal pruritus [None]
  - Female sexual dysfunction [None]
  - Menorrhagia [None]

NARRATIVE: CASE EVENT DATE: 20150713
